FAERS Safety Report 5886683-8 (Version None)
Quarter: 2008Q3

REPORT INFORMATION
  Report Type: 
  Country: None (occurrence: None)
  Receive Date: 20080917
  Receipt Date: 20080910
  Transmission Date: 20090109
  Serious: Yes (Hospitalization)
  Sender: FDA-Public Use
  Company Number: PHHY2008SE20827

PATIENT

DRUGS (5)
  1. ACLASTA [Suspect]
     Indication: OSTEOPOROSIS
     Dosage: 5 MG
     Dates: start: 20071029
  2. ARTHROTEC [Suspect]
     Dosage: UNK
     Dates: start: 20071104
  3. CALCIUM [Concomitant]
  4. REMIFEMIN [Concomitant]
  5. ANTIGLAUCOMA PREPARATIONS AND MIOTICS [Concomitant]

REACTIONS (6)
  - DYSSTASIA [None]
  - FLUID RETENTION [None]
  - LIVER FUNCTION TEST ABNORMAL [None]
  - MUSCULOSKELETAL STIFFNESS [None]
  - PAIN [None]
  - SWELLING [None]
